FAERS Safety Report 11936767 (Version 4)
Quarter: 2016Q2

REPORT INFORMATION
  Report Type: Report from Study
  Country: US (occurrence: US)
  Receive Date: 20160121
  Receipt Date: 20160502
  Transmission Date: 20160815
  Serious: Yes (Death, Hospitalization, Other)
  Sender: FDA-Public Use
  Company Number: US-GILEAD-2016-0193860

PATIENT
  Age: 42 Year
  Sex: Female
  Weight: 50.34 kg

DRUGS (2)
  1. AMBRISENTAN [Suspect]
     Active Substance: AMBRISENTAN
     Indication: PRODUCT USED FOR UNKNOWN INDICATION
     Dosage: 10 MG, QD
     Route: 065
     Dates: start: 20140620
  2. REMODULIN [Suspect]
     Active Substance: TREPROSTINIL
     Indication: PULMONARY HYPERTENSION
     Dosage: 0.040 UG/KG, UNK
     Route: 058
     Dates: start: 20150706

REACTIONS (8)
  - Death [Fatal]
  - General physical health deterioration [Fatal]
  - Respiratory failure [Unknown]
  - Tremor [Unknown]
  - Head injury [Unknown]
  - Limb injury [Unknown]
  - Renal failure [Unknown]
  - Fall [Unknown]

NARRATIVE: CASE EVENT DATE: 2016
